FAERS Safety Report 8616589-2 (Version None)
Quarter: 2012Q3

REPORT INFORMATION
  Report Type: 
  Country: None (occurrence: None)
  Receive Date: 20120823
  Receipt Date: 20120816
  Transmission Date: 20120928
  Serious: Yes (Other)
  Sender: FDA-Public Use
  Company Number: US-CELGENEUS-163-21880-12082073

PATIENT
  Sex: Female
  Weight: 63 kg

DRUGS (10)
  1. REVLIMID [Suspect]
     Indication: MYELODYSPLASTIC SYNDROME
     Dosage: 10 MILLIGRAM
     Route: 048
     Dates: start: 20110924
  2. AMITRIPTYLINE HYDROCHLORIDE [Concomitant]
     Route: 065
  3. MIRALAX [Concomitant]
     Route: 065
  4. LORTAB [Concomitant]
     Route: 065
  5. LIPITOR [Concomitant]
     Route: 065
  6. PREVACID [Concomitant]
     Route: 065
  7. COREG [Concomitant]
     Route: 065
  8. FUROSEMIDE [Concomitant]
     Route: 065
  9. GLIPIZIDE [Concomitant]
     Route: 065
  10. CENTRUM [Concomitant]
     Route: 065

REACTIONS (1)
  - LYMPHADENOPATHY [None]
